FAERS Safety Report 9349966 (Version 1)
Quarter: 2013Q2

REPORT INFORMATION
  Report Type: Spontaneous
  Country: GB (occurrence: GB)
  Receive Date: 20130614
  Receipt Date: 20130614
  Transmission Date: 20140414
  Serious: Yes (Hospitalization, Other)
  Sender: FDA-Public Use
  Company Number: PHFR2013GB002489

PATIENT
  Age: 84 Year
  Sex: Female
  Weight: 59 kg

DRUGS (17)
  1. CLOZARIL [Suspect]
     Indication: SCHIZOPHRENIA
     Dosage: 37.5 MG, QHS
     Route: 048
     Dates: start: 20130424
  2. CLOZARIL [Suspect]
     Dosage: 62.5 MG, (25 MG MANE, 37.5 MG NOCTE)
     Route: 048
     Dates: start: 20130503, end: 20130603
  3. WARFARIN [Concomitant]
     Indication: ATRIAL FIBRILLATION
     Dosage: AS PER DOSING CARD
     Route: 048
  4. DIGOXIN [Concomitant]
     Indication: ATRIAL FIBRILLATION
     Dosage: 125 MG, UNK
     Route: 048
  5. HUMULIN M3 [Concomitant]
     Indication: DIABETES MELLITUS
     Dosage: 24 UNIT, QD
     Route: 058
  6. MAXEPA [Concomitant]
     Indication: MEDICAL DIET
     Dosage: QD
     Route: 048
  7. PRAVASTATIN [Concomitant]
     Indication: HYPERCHOLESTEROLAEMIA
     Dosage: 10 MG, UNK
     Route: 048
  8. ALENDRONIC ACID [Concomitant]
     Indication: OSTEOPOROSIS
     Dosage: 70 MG, ONCE WEEKLY
     Route: 048
  9. PARACETAMOL [Concomitant]
     Indication: PAIN
     Dosage: 1 G, UNK, FOUR TIMES A DAY
     Route: 048
  10. VENLAFAXINE [Concomitant]
     Indication: DEPRESSION
     Dosage: 150 MG, QD
     Route: 048
  11. ADCAL-D3 [Concomitant]
     Indication: OSTEOPOROSIS
     Dosage: UNK, BID
     Route: 048
  12. GLICLAZIDE [Concomitant]
     Indication: DIABETES MELLITUS
     Dosage: 160 MG, BID
     Route: 048
  13. FERROUS FUMERATE [Concomitant]
     Indication: ANAEMIA
     Dosage: 210 MG, BID
     Route: 048
  14. CO-AMILOFRUSE [Concomitant]
     Indication: CARDIAC FAILURE
     Dosage: 1 DF, QD
     Route: 048
  15. OLANZAPINE [Concomitant]
     Dosage: 10 MG, QHS
     Route: 048
  16. LORAZEPAM [Concomitant]
     Dosage: 500 MCG - 1 MG (MAX 2 MG DAILY), PRN
     Route: 048
  17. ZOPICLONE [Concomitant]
     Dosage: 3.5 - 7.5 MG, (MAX 7.5 MG DAILY)
     Route: 048

REACTIONS (4)
  - Respiratory tract infection [Unknown]
  - Cellulitis [Unknown]
  - Urinary tract infection [Unknown]
  - C-reactive protein increased [Not Recovered/Not Resolved]
